FAERS Safety Report 9491906 (Version 1)
Quarter: 2013Q3

REPORT INFORMATION
  Report Type: Spontaneous
  Country: DE (occurrence: CA)
  Receive Date: 20130830
  Receipt Date: 20130830
  Transmission Date: 20140515
  Serious: Yes (Death)
  Sender: FDA-Public Use
  Company Number: CA-FRI-1000048154

PATIENT
  Age: 74 Year
  Sex: Male

DRUGS (1)
  1. ROFLUMILAST [Suspect]

REACTIONS (1)
  - Death [Fatal]
